FAERS Safety Report 5482936-6 (Version None)
Quarter: 2007Q4

REPORT INFORMATION
  Report Type: 
  Country: None (occurrence: None)
  Receive Date: 20071011
  Receipt Date: 20070928
  Transmission Date: 20080405
  Serious: Yes (Other)
  Sender: FDA-Public Use
  Company Number: KR-SANOFI-SYNTHELABO-A01200711042

PATIENT
  Sex: Male

DRUGS (1)
  1. TALWIN NX [Suspect]
     Indication: DRUG USE FOR UNKNOWN INDICATION
     Dosage: UNK
     Route: 065

REACTIONS (2)
  - DRUG DEPENDENCE [None]
  - SUBDURAL HAEMATOMA [None]
